FAERS Safety Report 10403299 (Version 1)
Quarter: 2014Q3

REPORT INFORMATION
  Report Type: Spontaneous
  Country: US (occurrence: US)
  Receive Date: 20140822
  Receipt Date: 20140822
  Transmission Date: 20150326
  Serious: Yes (Other)
  Sender: FDA-Public Use
  Company Number: US-ABBVIE-14K-163-1273129-00

PATIENT
  Age: 40 Year
  Sex: Male
  Weight: 102.15 kg

DRUGS (6)
  1. MOTRIN [Concomitant]
     Active Substance: IBUPROFEN
     Indication: PAIN
  2. ZANTAC [Concomitant]
     Active Substance: RANITIDINE HYDROCHLORIDE
     Indication: GASTROOESOPHAGEAL REFLUX DISEASE
  3. HYDROCODONE [Concomitant]
     Active Substance: HYDROCODONE
     Indication: PAIN
  4. HUMIRA [Suspect]
     Active Substance: ADALIMUMAB
     Dates: start: 20140405, end: 20140405
  5. HUMIRA [Suspect]
     Active Substance: ADALIMUMAB
     Indication: CROHN^S DISEASE
     Dates: start: 20140321, end: 20140322
  6. HUMIRA [Suspect]
     Active Substance: ADALIMUMAB
     Dates: start: 20140419

REACTIONS (5)
  - Ocular hyperaemia [Unknown]
  - Eye pruritus [Unknown]
  - Halo vision [Unknown]
  - Vision blurred [Unknown]
  - Hypertonic bladder [Not Recovered/Not Resolved]

NARRATIVE: CASE EVENT DATE: 201403
